FAERS Safety Report 11011198 (Version 3)
Quarter: 2015Q3

REPORT INFORMATION
  Report Type: Spontaneous
  Country: US (occurrence: US)
  Receive Date: 20150410
  Receipt Date: 20150922
  Transmission Date: 20151125
  Serious: No
  Sender: FDA-Public Use
  Company Number: US-009507513-1504USA000345

PATIENT
  Age: 17 Year
  Sex: Female
  Weight: 63.39 kg

DRUGS (1)
  1. NEXPLANON [Suspect]
     Active Substance: ETONOGESTREL
     Dosage: UNK
     Route: 059
     Dates: start: 20150119

REACTIONS (7)
  - Pyrexia [Unknown]
  - Face oedema [Unknown]
  - Pruritus generalised [Unknown]
  - Oropharyngeal pain [Unknown]
  - Headache [Unknown]
  - Swelling face [Not Recovered/Not Resolved]
  - Viral upper respiratory tract infection [Unknown]

NARRATIVE: CASE EVENT DATE: 20150120
